FAERS Safety Report 4814982-7 (Version None)
Quarter: 2005Q4

REPORT INFORMATION
  Report Type: 
  Country: None (occurrence: None)
  Receive Date: 20051028
  Receipt Date: 20051024
  Transmission Date: 20060501
  Serious: Yes (Other)
  Sender: FDA-Public Use
  Company Number: FR-JNJFOC-20051005412

PATIENT
  Age: 80 Year
  Sex: Female
  Weight: 45 kg

DRUGS (4)
  1. DURAGESIC-100 [Suspect]
     Indication: PAIN
     Route: 062
  2. DURAGESIC-100 [Suspect]
     Indication: ESCHAR
     Route: 062
  3. SCOPODERM [Concomitant]
     Route: 065
  4. ROCEPHIN [Concomitant]
     Indication: PNEUMONIA
     Route: 065

REACTIONS (2)
  - LETHARGY [None]
  - TACHYPNOEA [None]
